FAERS Safety Report 5054715-5 (Version None)
Quarter: 2006Q3

REPORT INFORMATION
  Report Type: 
  Country: None (occurrence: None)
  Receive Date: 20060719
  Receipt Date: 20060707
  Transmission Date: 20061208
  Serious: Yes (Other)
  Sender: FDA-Public Use
  Company Number: FR-BRISTOL-MYERS SQUIBB COMPANY-13436456

PATIENT
  Age: 56 Year
  Sex: Female

DRUGS (4)
  1. PRAVASTATIN [Suspect]
     Indication: HYPERCHOLESTEROLAEMIA
     Route: 048
     Dates: start: 20050201, end: 20060706
  2. PREVISCAN [Concomitant]
     Indication: PHLEBITIS
     Dates: start: 19970101
  3. DAFLON [Concomitant]
     Indication: PHLEBITIS
  4. ACTONEL [Concomitant]
     Indication: DYSKINESIA

REACTIONS (2)
  - BLOOD AMYLASE INCREASED [None]
  - LIPASE INCREASED [None]
